FAERS Safety Report 5114823-7 (Version None)
Quarter: 2006Q3

REPORT INFORMATION
  Report Type: 
  Country: None (occurrence: None)
  Receive Date: 20060922
  Receipt Date: 20060922
  Transmission Date: 20061208
  Serious: Yes (Hospitalization)
  Sender: FDA-Public Use
  Company Number: None

PATIENT
  Age: 74 Year
  Sex: Female
  Weight: 36.2878 kg

DRUGS (1)
  1. VANCOMYCIN [Suspect]
     Indication: CARDIAC PACEMAKER INSERTION

REACTIONS (9)
  - BREAST PAIN [None]
  - ERUCTATION [None]
  - FLATULENCE [None]
  - INCORRECT DOSE ADMINISTERED [None]
  - OESOPHAGEAL PAIN [None]
  - OESOPHAGEAL SPASM [None]
  - PAIN [None]
  - PRURITUS [None]
  - RED MAN SYNDROME [None]
